FAERS Safety Report 4851996-5 (Version None)
Quarter: 2005Q4

REPORT INFORMATION
  Report Type: 
  Country: None (occurrence: None)
  Receive Date: 20051209
  Receipt Date: 20051123
  Transmission Date: 20060501
  Serious: Yes (Hospitalization)
  Sender: FDA-Public Use
  Company Number: 220063

PATIENT
  Age: 69 Year
  Sex: Male
  Weight: 104.6 kg

DRUGS (11)
  1. AVASTIN [Suspect]
     Indication: COLORECTAL CANCER
     Dosage: 540 MG, Q2W, INTRAVENOUS
     Route: 042
     Dates: start: 20050907
  2. IRINOTECAN HCL [Suspect]
     Indication: COLORECTAL CANCER
     Dosage: 396 MG
     Dates: start: 20050907, end: 20051116
  3. FLUOROURACIL [Suspect]
     Indication: COLORECTAL CANCER
     Dosage: SEE IMAGE
     Route: 042
     Dates: start: 20050907, end: 20051123
  4. FLUOROURACIL [Suspect]
     Indication: COLORECTAL CANCER
     Dosage: SEE IMAGE
     Route: 042
     Dates: start: 20050907
  5. LEUCOVORIN CALCIUM [Suspect]
     Indication: COLORECTAL CANCER
     Dosage: 880 MG, IV BOLUS
     Route: 040
     Dates: start: 20050907, end: 20051116
  6. ATROPINE [Concomitant]
  7. ZOFRAN (ONDANSETRON HYDROCHLORIDE0 [Concomitant]
  8. DEXAMETHASONE [Concomitant]
  9. MAXERAN (METOCLOPRAMIDE HYDROCHLORIDE) [Concomitant]
  10. PANTOLOC (PANTOPRAZOLE) [Concomitant]
  11. HYDROCHLOROTHIAZIDE [Concomitant]

REACTIONS (10)
  - ANOREXIA [None]
  - CHILLS [None]
  - HEART RATE INCREASED [None]
  - MALAISE [None]
  - MYALGIA [None]
  - NAUSEA [None]
  - NEUTROPHIL COUNT DECREASED [None]
  - PYREXIA [None]
  - RESPIRATORY RATE INCREASED [None]
  - VOMITING [None]
